FAERS Safety Report 14418062 (Version 1)
Quarter: 2018Q1

REPORT INFORMATION
  Report Type: Spontaneous
  Country: US (occurrence: US)
  Receive Date: 20180122
  Receipt Date: 20180122
  Transmission Date: 20180509
  Serious: Yes (Hospitalization)
  Sender: FDA-Public Use
  Company Number: US-JNJFOC-20180116963

PATIENT
  Age: 63 Year
  Sex: Female
  Weight: 76.66 kg

DRUGS (2)
  1. ELMIRON [Suspect]
     Active Substance: PENTOSAN POLYSULFATE SODIUM
     Indication: CYSTITIS INTERSTITIAL
     Route: 048
     Dates: start: 201408, end: 201612
  2. ELMIRON [Suspect]
     Active Substance: PENTOSAN POLYSULFATE SODIUM
     Indication: CYSTITIS INTERSTITIAL
     Route: 048
     Dates: start: 201705, end: 201710

REACTIONS (3)
  - Cystitis interstitial [Unknown]
  - Abnormal loss of weight [Unknown]
  - Dizziness [Unknown]

NARRATIVE: CASE EVENT DATE: 201609
